FAERS Safety Report 14900971 (Version 2)
Quarter: 2018Q2

REPORT INFORMATION
  Report Type: Spontaneous
  Country: JP (occurrence: JP)
  Receive Date: 20180516
  Receipt Date: 20180604
  Transmission Date: 20180711
  Serious: Yes (Other)
  Sender: FDA-Public Use
  Company Number: JP-GLAXOSMITHKLINE-JP2018JPN081826

PATIENT
  Age: 29 Year
  Sex: Male
  Weight: 57 kg

DRUGS (4)
  1. VITAMEDIN FOR INTRAVENOUS INJECTION [Suspect]
     Active Substance: CYANOCOBALAMIN\PYRIDOXINE HYDROCHLORIDE\THIAMINE
     Indication: DIARRHOEA
     Dosage: 1 DF, 1D
     Route: 041
     Dates: start: 20180508, end: 20180508
  2. NICOTINE TRANSDERMAL SYSTEM [Suspect]
     Active Substance: NICOTINE
     Indication: SMOKING CESSATION THERAPY
     Dosage: 1 DF, 1D
     Route: 050
     Dates: start: 20180410
  3. NICOTINE TRANSDERMAL SYSTEM [Suspect]
     Active Substance: NICOTINE
     Dosage: 1 DF, 1D
     Route: 050
     Dates: start: 201805
  4. SOLDEM 3A [Concomitant]
     Active Substance: CARBOHYDRATES\POTASSIUM CHLORIDE\SODIUM CHLORIDE\SODIUM LACTATE
     Indication: DIARRHOEA
     Dosage: 500 ML, 1D
     Dates: start: 20180508, end: 20180508

REACTIONS (13)
  - Eczema [Recovering/Resolving]
  - Dyspnoea [Recovering/Resolving]
  - Swollen tongue [Recovering/Resolving]
  - Dysphonia [Recovering/Resolving]
  - Enlarged uvula [Recovering/Resolving]
  - Lip swelling [Recovering/Resolving]
  - Wheezing [Recovering/Resolving]
  - Blood pressure decreased [Recovered/Resolved]
  - Anaphylactoid reaction [Recovering/Resolving]
  - Pharyngeal oedema [Recovering/Resolving]
  - Diarrhoea [Recovering/Resolving]
  - Cough [Recovering/Resolving]
  - Throat tightness [Recovering/Resolving]

NARRATIVE: CASE EVENT DATE: 20180508
